FAERS Safety Report 9835937 (Version 3)
Quarter: 2014Q1

REPORT INFORMATION
  Report Type: Not Available
  Country: US (occurrence: US)
  Receive Date: 20140122
  Receipt Date: 20140127
  Transmission Date: 20141002
  Serious: Yes (Death)
  Sender: FDA-Public Use
  Company Number: US-ONYX-2014-0097

PATIENT
  Age: 46 Year
  Sex: Female

DRUGS (1)
  1. KYPROLIS [Suspect]
     Indication: PLASMA CELL MYELOMA
     Dates: start: 20140105, end: 20140106

REACTIONS (2)
  - Hepatic failure [Fatal]
  - Hepatosplenomegaly [Unknown]
